FAERS Safety Report 22945532 (Version 5)
Quarter: 2023Q4

REPORT INFORMATION
  Report Type: Report from Study
  Country: US (occurrence: US)
  Receive Date: 20230914
  Receipt Date: 20231225
  Transmission Date: 20240110
  Serious: Yes (Other)
  Sender: FDA-Public Use
  Company Number: US-HORIZON THERAPEUTICS-HZN-2023-005091

PATIENT

DRUGS (11)
  1. TEPEZZA [Suspect]
     Active Substance: TEPROTUMUMAB-TRBW
     Indication: Graves^ disease
     Dosage: 701 MG, INTRAVENOUS INFUSION OVER 90 MINUTES ONCE AS AN INITIAL INFUSION. THE MEDICATION IS ADMINIST
     Route: 042
     Dates: start: 20230630
  2. TEPEZZA [Suspect]
     Active Substance: TEPROTUMUMAB-TRBW
     Dosage: 1402 MG, EVERY 3 WEEKS (PACKAGING SIZE: 500MG) VIA INTRAVENOUS INFUSION OVER 60 - 90 MINUTES ONCE
     Route: 042
     Dates: start: 20230721
  3. TEPEZZA [Suspect]
     Active Substance: TEPROTUMUMAB-TRBW
     Dosage: THIRD INFUSION (MOST RECENT INFUSION) 1402 MG, 60-90 MINUTES ONCE EVERY 3 WEEKS. THE MEDICATION IS A
     Route: 042
     Dates: start: 20230811
  4. TEPEZZA [Suspect]
     Active Substance: TEPROTUMUMAB-TRBW
     Dosage: MOST RECENT INFUSION (UNKNOWN)
     Route: 042
     Dates: start: 20230921
  5. TEPEZZA [Suspect]
     Active Substance: TEPROTUMUMAB-TRBW
     Dosage: 1402 MG, EVERY 3 WEEKS
     Route: 042
     Dates: start: 20231123
  6. TEPEZZA [Suspect]
     Active Substance: TEPROTUMUMAB-TRBW
     Dosage: 8TH INFUSION
     Route: 042
     Dates: start: 2023
  7. GEMTESA [Suspect]
     Active Substance: VIBEGRON
     Indication: Product used for unknown indication
     Dosage: UNK
     Route: 065
  8. VITAMIN D [Concomitant]
     Active Substance: VITAMIN D NOS
     Dosage: ORAL CA
     Route: 048
  9. MONTELUKAST SODIUM [Concomitant]
     Active Substance: MONTELUKAST SODIUM
     Dosage: ORAL TABLET 10 M
     Route: 048
  10. METHIMAZOLE [Concomitant]
     Active Substance: METHIMAZOLE
     Dosage: ORAL TABLET
     Route: 048
  11. Artificial tears [Concomitant]
     Dosage: OPHTHALMIC SOLUTION
     Route: 047

REACTIONS (21)
  - Faecaloma [Unknown]
  - Deafness unilateral [Not Recovered/Not Resolved]
  - Abdominal discomfort [Recovering/Resolving]
  - Infusion site pruritus [Recovering/Resolving]
  - Infusion site erythema [Recovering/Resolving]
  - Infusion site rash [Unknown]
  - Ear pain [Unknown]
  - Pain [Unknown]
  - Diarrhoea [Recovering/Resolving]
  - Nausea [Unknown]
  - Exophthalmos [Recovering/Resolving]
  - Eye colour change [Unknown]
  - Hordeolum [Recovered/Resolved]
  - Malaise [Recovered/Resolved]
  - Feeling abnormal [Recovered/Resolved]
  - Eyelid margin crusting [Unknown]
  - Ocular hyperaemia [Unknown]
  - Eye pain [Not Recovered/Not Resolved]
  - Eye swelling [Unknown]
  - Vision blurred [Unknown]
  - Symptom recurrence [Unknown]

NARRATIVE: CASE EVENT DATE: 20230101
